FAERS Safety Report 9215189 (Version 1)
Quarter: 2013Q2

REPORT INFORMATION
  Report Type: Spontaneous
  Country: US (occurrence: US)
  Receive Date: 20130405
  Receipt Date: 20130405
  Transmission Date: 20140414
  Serious: No
  Sender: FDA-Public Use
  Company Number: US-BAYER-2013-043054

PATIENT
  Age: 73 Year
  Sex: Female
  Weight: 58.5 kg

DRUGS (7)
  1. ALEVE CAPLET [Suspect]
     Indication: MUSCULOSKELETAL PAIN
     Dosage: 2 DF, BID
     Route: 048
     Dates: start: 20130326
  2. FISH OIL [Concomitant]
  3. GLUCOSAMINE [Concomitant]
  4. MULTIVITAMIN [Concomitant]
  5. VITAMIN D [Concomitant]
  6. CALCIUM [Concomitant]
  7. VITAMIN E [Concomitant]

REACTIONS (2)
  - Overdose [None]
  - Drug ineffective [None]
